FAERS Safety Report 13405128 (Version 1)
Quarter: 2017Q2

REPORT INFORMATION
  Report Type: Spontaneous
  Country: US (occurrence: US)
  Receive Date: 20170405
  Receipt Date: 20170405
  Transmission Date: 20170830
  Serious: Yes (Other)
  Sender: FDA-Public Use
  Company Number: US-ACCORD-049853

PATIENT
  Age: 68 Year
  Sex: Female
  Weight: 72.6 kg

DRUGS (3)
  1. GLIPIZIDE. [Suspect]
     Active Substance: GLIPIZIDE
     Indication: DIABETES MELLITUS
     Route: 048
     Dates: end: 2015
  2. NUCYNTA [Concomitant]
     Active Substance: TAPENTADOL HYDROCHLORIDE
     Indication: ARTHRALGIA
     Dosage: RECEIVED 100 MG IMMEDIATE RELEASE TABLET FROM 2012 TO 2015 ONE TABLET FOUR TIMES A DAY
     Route: 048
     Dates: start: 2012
  3. NEXIUM [Concomitant]
     Active Substance: ESOMEPRAZOLE MAGNESIUM
     Indication: ULCER

REACTIONS (1)
  - Hypoglycaemic coma [Recovered/Resolved]
